FAERS Safety Report 21641652 (Version 1)
Quarter: 2022Q4

REPORT INFORMATION
  Report Type: Report from Study
  Country: US (occurrence: US)
  Receive Date: 20221125
  Receipt Date: 20221125
  Transmission Date: 20230112
  Serious: No
  Sender: FDA-Public Use
  Company Number: US-ABBVIE-22K-163-4387800-00

PATIENT
  Sex: Male

DRUGS (3)
  1. IMBRUVICA [Suspect]
     Active Substance: IBRUTINIB
     Indication: B-cell small lymphocytic lymphoma
     Route: 048
     Dates: start: 20220124, end: 2022
  2. IMBRUVICA [Suspect]
     Active Substance: IBRUTINIB
     Indication: B-cell small lymphocytic lymphoma
     Route: 048
     Dates: start: 2022
  3. IMBRUVICA [Suspect]
     Active Substance: IBRUTINIB
     Indication: B-cell small lymphocytic lymphoma
     Route: 048

REACTIONS (3)
  - White blood cell count decreased [Recovering/Resolving]
  - Rash macular [Unknown]
  - Contusion [Unknown]

NARRATIVE: CASE EVENT DATE: 20220101
